FAERS Safety Report 7544127-4 (Version None)
Quarter: 2011Q2

REPORT INFORMATION
  Report Type: 
  Country: None (occurrence: None)
  Receive Date: 20110613
  Receipt Date: 20060609
  Transmission Date: 20111010
  Serious: Yes (Hospitalization)
  Sender: FDA-Public Use
  Company Number: PHHO2005CA13265

PATIENT
  Sex: Female

DRUGS (11)
  1. METFFORMIN HYDROCHLORIDE [Concomitant]
  2. OCTREOTIDE ACETATE [Suspect]
     Route: 042
  3. CLONAZEPAM [Concomitant]
  4. SANDOSTATIN LAR [Suspect]
     Indication: CARCINOID TUMOUR
     Dates: start: 20040830
  5. PROCHLORPERAZINE [Concomitant]
  6. ATIVAN [Concomitant]
  7. PRILOSEC [Concomitant]
  8. ASPIRIN [Concomitant]
  9. DILAUDID [Concomitant]
  10. TRAZODONE HCL [Concomitant]
  11. ACETAMINOPHEN [Concomitant]

REACTIONS (2)
  - DEVICE RELATED INFECTION [None]
  - URINARY TRACT INFECTION [None]
